FAERS Safety Report 24455681 (Version 2)
Quarter: 2024Q4

REPORT INFORMATION
  Report Type: Spontaneous
  Country: US (occurrence: US)
  Receive Date: 20241017
  Receipt Date: 20241018
  Transmission Date: 20250115
  Serious: No
  Sender: ROCHE
  Company Number: US-ROCHE-3484506

PATIENT
  Age: 4 Year
  Sex: Female

DRUGS (1)
  1. RITUXAN [Suspect]
     Active Substance: RITUXIMAB
     Indication: Encephalitis autoimmune
     Route: 065

REACTIONS (4)
  - Agitation [Unknown]
  - Off label use [Unknown]
  - Cognitive disorder [Unknown]
  - Motor dysfunction [Unknown]
